FAERS Safety Report 6590680-7 (Version None)
Quarter: 2010Q1

REPORT INFORMATION
  Report Type: 
  Country: None (occurrence: None)
  Receive Date: 20100219
  Receipt Date: 20100211
  Transmission Date: 20100710
  Serious: Yes (Hospitalization)
  Sender: FDA-Public Use
  Company Number: B0633003A

PATIENT
  Sex: Female

DRUGS (5)
  1. ZOPHREN [Suspect]
     Indication: PREMEDICATION
     Dosage: 8MG PER DAY
     Route: 042
     Dates: start: 20091117, end: 20091117
  2. ELOXATIN [Suspect]
     Dosage: 110MG PER DAY
     Route: 042
     Dates: start: 20091117, end: 20091117
  3. FLUORO-URACILE [Suspect]
     Route: 042
     Dates: start: 20091117
  4. METHYLPREDNISOLONE [Suspect]
     Indication: PREMEDICATION
     Dosage: 60MG PER DAY
     Route: 042
     Dates: start: 20091117, end: 20091117
  5. LEVOFOLINIC ACID [Suspect]
     Indication: PREMEDICATION
     Dosage: 250MG PER DAY
     Route: 042
     Dates: start: 20091117, end: 20091117

REACTIONS (3)
  - ERYTHEMA [None]
  - PARAESTHESIA [None]
  - THROMBOCYTOPENIA [None]
